FAERS Safety Report 19508216 (Version 1)
Quarter: 2021Q3

REPORT INFORMATION
  Report Type: Spontaneous
  Country: GB (occurrence: GB)
  Receive Date: 20210708
  Receipt Date: 20210708
  Transmission Date: 20211014
  Serious: Yes (Other)
  Sender: FDA-Public Use
  Company Number: GB-ASTRAZENECA-2021A583676

PATIENT
  Age: 58 Year
  Sex: Male
  Weight: 82.1 kg

DRUGS (8)
  1. OMEPRAZOLE. [Concomitant]
     Active Substance: OMEPRAZOLE
     Indication: ILL-DEFINED DISORDER
  2. APIXABAN [Concomitant]
     Active Substance: APIXABAN
     Indication: ILL-DEFINED DISORDER
  3. GLICLAZIDE [Concomitant]
     Active Substance: GLICLAZIDE
     Indication: ILL-DEFINED DISORDER
  4. NAPROXEN. [Concomitant]
     Active Substance: NAPROXEN
     Indication: ILL-DEFINED DISORDER
  5. TAMSULOSIN [Concomitant]
     Active Substance: TAMSULOSIN
     Indication: ILL-DEFINED DISORDER
  6. DAPAGLIFLOZIN. [Suspect]
     Active Substance: DAPAGLIFLOZIN
     Indication: DIABETES MELLITUS INADEQUATE CONTROL
     Dosage: 10MG DAILY
     Route: 048
     Dates: start: 20161206, end: 20210629
  7. BISOPROLOL [Concomitant]
     Active Substance: BISOPROLOL
     Indication: ILL-DEFINED DISORDER
  8. ATORVASTATIN [Concomitant]
     Active Substance: ATORVASTATIN
     Indication: ILL-DEFINED DISORDER

REACTIONS (1)
  - Gangrene [Not Recovered/Not Resolved]
